FAERS Safety Report 6574771-2 (Version None)
Quarter: 2010Q1

REPORT INFORMATION
  Report Type: 
  Country: None (occurrence: None)
  Receive Date: 20100209
  Receipt Date: 20100127
  Transmission Date: 20100710
  Serious: Yes (Other)
  Sender: FDA-Public Use
  Company Number: PHEH2010US01584

PATIENT
  Sex: Female

DRUGS (5)
  1. EXFORGE [Suspect]
     Dosage: 320/5 MG, QD
  2. ATENOLOL [Concomitant]
  3. ALLOPURINOL [Concomitant]
  4. VITAMIN C [Concomitant]
  5. MINERAL TAB [Concomitant]

REACTIONS (5)
  - ERYTHEMA [None]
  - EYELID OEDEMA [None]
  - JOINT SWELLING [None]
  - PRURITUS [None]
  - SWELLING FACE [None]
